FAERS Safety Report 16084439 (Version 2)
Quarter: 2019Q1

REPORT INFORMATION
  Report Type: Spontaneous
  Country: PL (occurrence: PL)
  Receive Date: 20190318
  Receipt Date: 20190322
  Transmission Date: 20190418
  Serious: Yes (Death)
  Sender: FDA-Public Use
  Company Number: PL-B.I. PHARMACEUTICALS,INC./RIDGEFIELD-2017-BI-053015

PATIENT
  Age: 62 Year
  Sex: Female
  Weight: 68 kg

DRUGS (2)
  1. GILOTRIF [Suspect]
     Active Substance: AFATINIB
     Route: 065
     Dates: start: 20170109
  2. GILOTRIF [Suspect]
     Active Substance: AFATINIB
     Indication: DRUG THERAPY
     Route: 065
     Dates: start: 20161212, end: 20170105

REACTIONS (4)
  - Headache [Unknown]
  - Malignant neoplasm progression [Fatal]
  - Dermatitis acneiform [Recovering/Resolving]
  - Diarrhoea [Recovered/Resolved]

NARRATIVE: CASE EVENT DATE: 20161224
